FAERS Safety Report 17566310 (Version 2)
Quarter: 2020Q1

REPORT INFORMATION
  Report Type: Spontaneous
  Country: JP (occurrence: JP)
  Receive Date: 20200320
  Receipt Date: 20200327
  Transmission Date: 20200409
  Serious: Yes (Other)
  Sender: FDA-Public Use
  Company Number: JP-JNJFOC-20200321361

PATIENT
  Age: 48 Year
  Sex: Female

DRUGS (6)
  1. RISPERIDONE. [Suspect]
     Active Substance: RISPERIDONE
     Indication: SCHIZOPHRENIA
     Route: 048
  2. ALPRAZOLAM. [Concomitant]
     Active Substance: ALPRAZOLAM
     Indication: ANXIETY
     Route: 048
  3. SILECE [Concomitant]
     Active Substance: FLUNITRAZEPAM
     Indication: INSOMNIA
     Dosage: UNKNOWN
     Route: 048
  4. EFFEXOR XR [Concomitant]
     Active Substance: VENLAFAXINE HYDROCHLORIDE
     Indication: SCHIZOPHRENIA
     Route: 048
  5. INVEGA [Suspect]
     Active Substance: PALIPERIDONE
     Indication: SCHIZOPHRENIA
     Route: 048
  6. BENZALIN                           /00036201/ [Concomitant]
     Active Substance: NITRAZEPAM
     Indication: INSOMNIA
     Dosage: FOR SLEEPLESSNESS
     Route: 048

REACTIONS (4)
  - Feeling abnormal [Not Recovered/Not Resolved]
  - Disease progression [Unknown]
  - Drug dependence [Unknown]
  - Overdose [Unknown]
